APPROVED DRUG PRODUCT: FAMCICLOVIR
Active Ingredient: FAMCICLOVIR
Strength: 125MG
Dosage Form/Route: TABLET;ORAL
Application: A201333 | Product #001
Applicant: NATCO PHARMA LTD
Approved: Mar 24, 2011 | RLD: No | RS: No | Type: DISCN